FAERS Safety Report 4264426-1 (Version None)
Quarter: 2004Q1

REPORT INFORMATION
  Report Type: 
  Country: None (occurrence: None)
  Receive Date: 20040106
  Receipt Date: 20030418
  Transmission Date: 20041129
  Serious: Yes (Other)
  Sender: FDA-Public Use
  Company Number: JP-GLAXOSMITHKLINE-B0297777A

PATIENT
  Age: 44 Year
  Sex: Female

DRUGS (4)
  1. IMIGRAN [Suspect]
     Indication: MIGRAINE
     Dosage: 50MG PER DAY
     Route: 048
     Dates: start: 20021015, end: 20021024
  2. AFLOQUALONE [Concomitant]
     Route: 048
  3. DIMETOTIAZINE MESILATE [Concomitant]
     Route: 048
  4. ZOLMITRIPTAN [Concomitant]
     Route: 048

REACTIONS (2)
  - BIOPSY LIVER ABNORMAL [None]
  - HEPATITIS [None]
